FAERS Safety Report 11326838 (Version 1)
Quarter: 2015Q3

REPORT INFORMATION
  Report Type: Spontaneous
  Country: GB (occurrence: GB)
  Receive Date: 20150731
  Receipt Date: 20150731
  Transmission Date: 20151125
  Serious: Yes (Other)
  Sender: FDA-Public Use
  Company Number: GB-BANPHARM-20154080

PATIENT
  Age: 20 Year
  Sex: Female

DRUGS (2)
  1. IBUPROFEN UNKNOWN PRODUCT [Suspect]
     Active Substance: IBUPROFEN
     Dates: start: 20150710
  2. TRAMADOL. [Concomitant]
     Active Substance: TRAMADOL
     Dates: start: 20150710

REACTIONS (1)
  - Stridor [Unknown]

NARRATIVE: CASE EVENT DATE: 20150713
